FAERS Safety Report 15309265 (Version 2)
Quarter: 2018Q4

REPORT INFORMATION
  Report Type: Spontaneous
  Country: US (occurrence: US)
  Receive Date: 20180823
  Receipt Date: 20180921
  Transmission Date: 20190204
  Serious: Yes (Other)
  Sender: FDA-Public Use
  Company Number: US-IGSA-SR10006388

PATIENT
  Age: 64 Year
  Sex: Male

DRUGS (2)
  1. PLASBUMIN [Suspect]
     Active Substance: ALBUMIN HUMAN
     Indication: POLYNEUROPATHY IDIOPATHIC PROGRESSIVE
     Dosage: 3600 ML, Q.M.T.
     Route: 042
     Dates: start: 20180416
  2. PLASBUMIN [Suspect]
     Active Substance: ALBUMIN HUMAN
     Dosage: 3600 ML, Q.M.T.
     Route: 042
     Dates: start: 20180418

REACTIONS (5)
  - Urticaria [Unknown]
  - Limb discomfort [Unknown]
  - Pharyngeal oedema [Unknown]
  - Pruritus [Unknown]
  - Anaphylactic reaction [Unknown]

NARRATIVE: CASE EVENT DATE: 20180416
